FAERS Safety Report 10228360 (Version 1)
Quarter: 2014Q2

REPORT INFORMATION
  Report Type: Spontaneous
  Country: US (occurrence: None)
  Receive Date: 20140609
  Receipt Date: 20140609
  Transmission Date: 20141212
  Serious: Yes (Life-Threatening, Hospitalization)
  Sender: FDA-Public Use
  Company Number: None

PATIENT
  Age: 17 Year
  Sex: Female
  Weight: 53.07 kg

DRUGS (1)
  1. TOPIRAMATE [Suspect]
     Indication: MIGRAINE
     Route: 048
     Dates: start: 20140504, end: 20140606

REACTIONS (15)
  - Anxiety [None]
  - Tachycardia [None]
  - Confusional state [None]
  - Fear [None]
  - Chest pain [None]
  - Drug administration error [None]
  - Accidental overdose [None]
  - Diarrhoea [None]
  - Pruritus [None]
  - Paraesthesia [None]
  - Decreased appetite [None]
  - Nausea [None]
  - Fatigue [None]
  - Migraine [None]
  - Weight decreased [None]
